FAERS Safety Report 7081440-1 (Version None)
Quarter: 2010Q4

REPORT INFORMATION
  Report Type: 
  Country: None (occurrence: None)
  Receive Date: 20101103
  Receipt Date: 20101021
  Transmission Date: 20110411
  Serious: Yes (Other)
  Sender: FDA-Public Use
  Company Number: IE-WATSON-2010-14101

PATIENT
  Age: 37 Year
  Sex: Female

DRUGS (4)
  1. CRINONE (WATSON LABORATORIES) [Suspect]
     Indication: INFERTILITY FEMALE
     Dosage: 2 IN 1 DAY
     Route: 067
  2. PUREGON                            /01348901/ [Suspect]
     Indication: INFERTILITY FEMALE
     Dosage: 100 IU DAILY
  3. ORGALUTRAN                         /01453701/ [Suspect]
     Indication: INFERTILITY FEMALE
     Dosage: 0.25 MG
  4. PREGNYL [Suspect]
     Indication: INFERTILITY FEMALE
     Dosage: 10000 IU

REACTIONS (4)
  - DRUG EXPOSURE DURING PREGNANCY [None]
  - PREMATURE LABOUR [None]
  - TWIN PREGNANCY [None]
  - VAGINAL HAEMORRHAGE [None]
